FAERS Safety Report 6138078-X (Version None)
Quarter: 2009Q1

REPORT INFORMATION
  Report Type: 
  Country: None (occurrence: None)
  Receive Date: 20090327
  Receipt Date: 20090327
  Transmission Date: 20090719
  Serious: No
  Sender: FDA-Public Use
  Company Number: None

PATIENT
  Age: 56 Year
  Sex: Male

DRUGS (1)
  1. DUONEB [Suspect]
     Dosage: 1 NEBULIZATION Q4H INHAL
     Route: 055

REACTIONS (2)
  - MYDRIASIS [None]
  - PUPILS UNEQUAL [None]
